FAERS Safety Report 8697758 (Version 2)
Quarter: 2012Q4

REPORT INFORMATION
  Report Type: Spontaneous
  Country: US (occurrence: None)
  Receive Date: 20120717
  Receipt Date: 20121129
  Transmission Date: 20130627
  Serious: Yes (Death)
  Sender: FDA-Public Use
  Company Number: JPI-P-022483

PATIENT
  Age: 49 Year
  Sex: Female

DRUGS (9)
  1. XYREM [Suspect]
     Indication: FIBROMYALGIA
     Dosage: 9 GM (4.5 GM, 2 IN 1 D). ORAL
     Route: 048
     Dates: start: 20080819
  2. FLUTICASONE PROPIONATE [Concomitant]
  3. METFORMIN HYDROCHLORIDE [Concomitant]
  4. LIDOCAINE [Concomitant]
  5. ATORVASTATIN CALCIUM [Concomitant]
  6. PAROXETINE HYDROCHLORIDE [Concomitant]
  7. ACETAMINOPHEN; HYDROCODONE BITARTRATE [Concomitant]
  8. TERBINAFINE [Concomitant]
  9. ALPRAZOLAM [Concomitant]

REACTIONS (2)
  - Vision blurred [None]
  - Weight decreased [None]
